FAERS Safety Report 4434540-6 (Version None)
Quarter: 2004Q3

REPORT INFORMATION
  Report Type: 
  Country: None (occurrence: None)
  Receive Date: 20040727
  Receipt Date: 20040116
  Transmission Date: 20050211
  Serious: Yes (Other)
  Sender: FDA-Public Use
  Company Number: 2004S1000143

PATIENT
  Age: 58 Year
  Sex: Female
  Weight: 78.4723 kg

DRUGS (5)
  1. ACEBUTOLOL HCL [Suspect]
     Indication: ARRHYTHMIA
     Dosage: ORAL
     Route: 048
     Dates: start: 20030104, end: 20031101
  2. ACEBUTOLOL HCL [Suspect]
     Indication: HYPERTENSION
     Dosage: ORAL
     Route: 048
     Dates: start: 20030104, end: 20031101
  3. ACEBUTOLOL HCL [Suspect]
     Indication: ARRHYTHMIA
     Dosage: 200 MG, QD, ORAL
     Route: 048
     Dates: start: 20031101
  4. ACEBUTOLOL HCL [Suspect]
     Indication: HYPERTENSION
     Dosage: 200 MG, QD, ORAL
     Route: 048
     Dates: start: 20031101
  5. AZITHROMYCIN [Concomitant]

REACTIONS (2)
  - ALOPECIA [None]
  - TRICHORRHEXIS [None]
